FAERS Safety Report 5109644-5 (Version None)
Quarter: 2006Q3

REPORT INFORMATION
  Report Type: 
  Country: None (occurrence: None)
  Receive Date: 20060918
  Receipt Date: 20060901
  Transmission Date: 20061208
  Serious: Yes (Other)
  Sender: FDA-Public Use
  Company Number: 14682

PATIENT
  Age: 48 Year
  Sex: Male

DRUGS (12)
  1. DACARBAZINE [Suspect]
     Indication: METASTASES TO LUNG
  2. DACARBAZINE [Suspect]
     Indication: METASTATIC MALIGNANT MELANOMA
  3. DACARBAZINE [Suspect]
     Indication: METASTASES TO LUNG
  4. DACARBAZINE [Suspect]
     Indication: METASTATIC MALIGNANT MELANOMA
  5. VINBLASTINE [Suspect]
     Indication: METASTASES TO LUNG
  6. VINBLASTINE [Suspect]
     Indication: METASTATIC MALIGNANT MELANOMA
  7. VINBLASTINE [Suspect]
     Indication: METASTASES TO LUNG
  8. VINBLASTINE [Suspect]
     Indication: METASTATIC MALIGNANT MELANOMA
  9. INTERFERON-ALPHA [Suspect]
     Indication: METASTASES TO LUNG
  10. INTERFERON-ALPHA [Suspect]
     Indication: METASTATIC MALIGNANT MELANOMA
  11. INTERFERON-ALPHA [Suspect]
     Indication: METASTASES TO LUNG
  12. INTERFERON-ALPHA [Suspect]
     Indication: METASTATIC MALIGNANT MELANOMA

REACTIONS (4)
  - CONDITION AGGRAVATED [None]
  - METASTASES TO LUNG [None]
  - RECURRENT CANCER [None]
  - VITILIGO [None]
